FAERS Safety Report 25739623 (Version 1)
Quarter: 2025Q3

REPORT INFORMATION
  Report Type: Other
  Country: GB (occurrence: GB)
  Receive Date: 20250829
  Receipt Date: 20250829
  Transmission Date: 20251020
  Serious: Yes (Other)
  Sender: MACLEODS
  Company Number: None

PATIENT

DRUGS (1)
  1. VARENICLINE [Suspect]
     Active Substance: VARENICLINE
     Indication: Adverse drug reaction
     Dosage: 1MG BD
     Route: 065
     Dates: start: 20250628, end: 20250725

REACTIONS (1)
  - Haematochezia [Recovered/Resolved]

NARRATIVE: CASE EVENT DATE: 20250725
